FAERS Safety Report 10013020 (Version 1)
Quarter: 2014Q1

REPORT INFORMATION
  Report Type: Spontaneous
  Country: US (occurrence: US)
  Receive Date: 20140314
  Receipt Date: 20140314
  Transmission Date: 20141002
  Serious: Yes (Hospitalization)
  Sender: FDA-Public Use
  Company Number: US-ASTRAZENECA-2014SE16373

PATIENT
  Age: 78 Year
  Sex: Female

DRUGS (6)
  1. GENERIC LISINOPRIL [Suspect]
     Dates: start: 201212
  2. TOPROL XL [Suspect]
     Route: 048
     Dates: start: 201212
  3. ADVAIR [Suspect]
     Indication: CHRONIC OBSTRUCTIVE PULMONARY DISEASE
     Dosage: 250/50, 1 PUFF TWICE PER DAY
     Route: 055
     Dates: start: 2006
  4. FRUSEMIDE [Concomitant]
  5. WARFARIN SODIUM [Concomitant]
  6. PROAIR HFA [Concomitant]

REACTIONS (4)
  - Pneumonia [Recovering/Resolving]
  - Balance disorder [Recovering/Resolving]
  - Tremor [Recovering/Resolving]
  - Nervousness [Recovering/Resolving]
